FAERS Safety Report 10356375 (Version 1)
Quarter: 2014Q3

REPORT INFORMATION
  Report Type: Spontaneous
  Country: US (occurrence: US)
  Receive Date: 20140801
  Receipt Date: 20140801
  Transmission Date: 20150326
  Serious: Yes (Hospitalization)
  Sender: FDA-Public Use
  Company Number: US-UCBSA-2014007061

PATIENT

DRUGS (8)
  1. KEPPRA [Suspect]
     Active Substance: LEVETIRACETAM
     Dosage: DOSE: 1000 MG OF KEPPRA A DAY
     Dates: start: 2006
  2. LAMICTAL [Concomitant]
     Active Substance: LAMOTRIGINE
     Dosage: DOSE: 200 MG
  3. PROZAC [Concomitant]
     Active Substance: FLUOXETINE HYDROCHLORIDE
  4. KEPPRA [Suspect]
     Active Substance: LEVETIRACETAM
     Dosage: DOSE: 2000 MG
     Dates: start: 2006, end: 2006
  5. KEPPRA [Suspect]
     Active Substance: LEVETIRACETAM
     Dosage: DOSE: 1500 MG OF KEPPRA A DAY
  6. KEPPRA [Suspect]
     Active Substance: LEVETIRACETAM
     Dosage: INCREASED DOSE FROM 1500 MG A DAY
  7. CITALOPRAM [Concomitant]
     Active Substance: CITALOPRAM HYDROBROMIDE
     Indication: DEPRESSION
  8. KEPPRA [Suspect]
     Active Substance: LEVETIRACETAM
     Dosage: DOSE: 2000 MG KEPPRA A DAY
     Dates: start: 2012

REACTIONS (6)
  - Depression [Unknown]
  - Hypomania [Unknown]
  - Memory impairment [Unknown]
  - Bipolar disorder [Unknown]
  - Convulsion [Unknown]
  - Insomnia [Unknown]

NARRATIVE: CASE EVENT DATE: 2006
